FAERS Safety Report 18395109 (Version 1)
Quarter: 2020Q4

REPORT INFORMATION
  Report Type: Other
  Country: US (occurrence: US)
  Receive Date: 20201016
  Receipt Date: 20201016
  Transmission Date: 20210114
  Serious: Yes (Death)
  Sender: FDA-Public Use
  Company Number: US-ROCHE-2697077

PATIENT
  Sex: Female

DRUGS (17)
  1. HYDROCHLOROTHIAZIDE. [Concomitant]
     Active Substance: HYDROCHLOROTHIAZIDE
     Dosage: TAKE 25 MG BY MOUTH DAILY
     Route: 048
  2. CHOLECALCIFEROL [Concomitant]
     Active Substance: CHOLECALCIFEROL
     Dosage: 1 TABLET DAILY
     Route: 048
  3. FUROSEMIDE. [Concomitant]
     Active Substance: FUROSEMIDE
     Dosage: TAKE 1 TABLET BY MOUTH DAILY
     Route: 048
  4. ASPIRIN. [Concomitant]
     Active Substance: ASPIRIN
     Dosage: 1 TABLET DAILY
     Route: 048
  5. LORAZEPAM. [Concomitant]
     Active Substance: LORAZEPAM
     Indication: ANXIETY
     Dosage: TAKE 1 TABLET BY MOUTH EVERY 6 HOURS AS NEEDED FOR ANXIETY
     Route: 048
  6. PROCHLORPERAZINE. [Concomitant]
     Active Substance: PROCHLORPERAZINE
     Indication: NAUSEA
     Dosage: TAKE 1 TABLET BY MOUTH EVERY 6 HOUS AS NEEDED FOR NAUSEA OR VOMITING
     Route: 048
  7. PROCHLORPERAZINE. [Concomitant]
     Active Substance: PROCHLORPERAZINE
     Indication: VOMITING
  8. PROPRANOLOL [Concomitant]
     Active Substance: PROPRANOLOL HYDROCHLORIDE
     Dosage: TAKE 1 TABLET BY MOUTH 2 TIMES DAILY
     Route: 048
  9. PREDNISONE. [Concomitant]
     Active Substance: PREDNISONE
     Dosage: TAKE 6 TABLETS BY MOUTH DAILY
     Route: 048
  10. VITAMIN D3 [Concomitant]
     Active Substance: CHOLECALCIFEROL
     Route: 048
  11. GABAPENTIN. [Concomitant]
     Active Substance: GABAPENTIN
     Dosage: TAKE 1 CAPSULE BY MOUTH 2 TIMES DAILY
     Route: 048
  12. XELODA [Suspect]
     Active Substance: CAPECITABINE
     Dosage: TAKE 3 TABS TWICE DAILY FOR 14 DAYS FOLLOWED BY 7 DAYS OFF REPEAT.
     Route: 048
  13. ATORVASTATIN [Concomitant]
     Active Substance: ATORVASTATIN
     Route: 048
  14. XELODA [Suspect]
     Active Substance: CAPECITABINE
     Indication: NEOPLASM MALIGNANT
     Dosage: TOMAR 3 TABLETA(S) DOS VECES AL DIA 2 SEMANAS, Y N
     Route: 048
  15. POTASSIUM CHLORIDE. [Concomitant]
     Active Substance: POTASSIUM CHLORIDE
     Dosage: 20 MEQ DISPERSABLE ER TABLET
     Route: 048
  16. XARELTO [Concomitant]
     Active Substance: RIVAROXABAN
     Route: 048
  17. CALCIUM CARBONATE. [Concomitant]
     Active Substance: CALCIUM CARBONATE
     Dosage: TAKE 600 MG BY MOUTH 2 TOMES DAILY
     Route: 048

REACTIONS (1)
  - Death [Fatal]
